FAERS Safety Report 16543995 (Version 2)
Quarter: 2019Q3

REPORT INFORMATION
  Report Type: Spontaneous
  Country: US (occurrence: US)
  Receive Date: 20190709
  Receipt Date: 20190716
  Transmission Date: 20191004
  Serious: No
  Sender: FDA-Public Use
  Company Number: US-KYOWAKIRIN-2019BKK010672

PATIENT

DRUGS (1)
  1. CRYSVITA [Suspect]
     Active Substance: BUROSUMAB-TWZA
     Indication: HEREDITARY HYPOPHOSPHATAEMIC RICKETS
     Dosage: 40 MG, 1X/2 WEEKS
     Route: 065
     Dates: start: 20190525

REACTIONS (1)
  - Blood phosphorus increased [Unknown]

NARRATIVE: CASE EVENT DATE: 201906
